FAERS Safety Report 14417564 (Version 1)
Quarter: 2018Q1

REPORT INFORMATION
  Report Type: Spontaneous
  Country: NZ (occurrence: NZ)
  Receive Date: 20180119
  Receipt Date: 20180119
  Transmission Date: 20180509
  Serious: Yes (Disabling)
  Sender: FDA-Public Use
  Company Number: None

PATIENT
  Sex: Female
  Weight: 21 kg

DRUGS (4)
  1. GREEN POWDERS [Concomitant]
  2. PROBIOTICS [Concomitant]
     Active Substance: PROBIOTICS NOS
  3. VITAMIN C [Concomitant]
     Active Substance: ASCORBIC ACID
  4. MOMETASONE [Suspect]
     Active Substance: MOMETASONE
     Indication: ECZEMA
     Dates: start: 20140515, end: 20151120

REACTIONS (5)
  - Insomnia [None]
  - Therapy cessation [None]
  - Haemorrhage [None]
  - Drug ineffective [None]
  - Generalised erythema [None]

NARRATIVE: CASE EVENT DATE: 20141120
